FAERS Safety Report 7493471-8 (Version None)
Quarter: 2011Q2

REPORT INFORMATION
  Report Type: 
  Country: None (occurrence: None)
  Receive Date: 20110520
  Receipt Date: 20110506
  Transmission Date: 20111010
  Serious: Yes (Other)
  Sender: FDA-Public Use
  Company Number: US-BAYER-2011-043007

PATIENT
  Age: 39 Year
  Sex: Female

DRUGS (16)
  1. DROSPIRENONE AND ETHINYL ESTRADIOL [Suspect]
     Indication: PREMENSTRUAL SYNDROME
  2. IMITREX [Concomitant]
     Indication: MIGRAINE
     Dosage: UNK
     Route: 048
     Dates: start: 20020101
  3. MAXALT [Concomitant]
     Dosage: 10 MG, UNK
     Route: 048
  4. YAZ [Suspect]
     Indication: ACNE
     Dosage: UNK
     Dates: start: 20090101
  5. EFFEXOR [Concomitant]
     Indication: BIPOLAR DISORDER
     Dosage: UNK
     Route: 048
     Dates: start: 20060101
  6. SEROQUEL [Concomitant]
     Dosage: UNK
     Route: 048
     Dates: start: 20060101
  7. YASMIN [Suspect]
     Indication: PREMENSTRUAL SYNDROME
  8. DROSPIRENONE AND ETHINYL ESTRADIOL [Suspect]
     Indication: ACNE
     Dosage: UNK
     Dates: start: 20090101
  9. PIROXICAM [Concomitant]
     Dosage: 20 MG, UNK
     Route: 048
     Dates: start: 20090619
  10. LITHIUM CARBONATE [Concomitant]
     Indication: BIPOLAR DISORDER
     Dosage: UNK
     Route: 048
     Dates: start: 20060101
  11. TOPAMAX [Concomitant]
     Route: 048
  12. TRETINOIN [Concomitant]
     Dosage: 0.025 UNK, UNK
     Route: 061
  13. CLINDAMYCIN [Concomitant]
     Dosage: 1 %, UNK
     Route: 061
     Dates: start: 20090523
  14. YASMIN [Suspect]
     Indication: ACNE
     Dosage: UNK
     Dates: start: 20090101
  15. YAZ [Suspect]
     Indication: PREMENSTRUAL SYNDROME
  16. OMEPRAZOLE [Concomitant]
     Dosage: 20 MG, UNK
     Route: 048
     Dates: start: 20090619

REACTIONS (2)
  - THROMBOSIS [None]
  - VENOUS THROMBOSIS LIMB [None]
